FAERS Safety Report 25847382 (Version 4)
Quarter: 2025Q4

REPORT INFORMATION
  Report Type: Spontaneous
  Country: US (occurrence: US)
  Receive Date: 20250925
  Receipt Date: 20251208
  Transmission Date: 20260117
  Serious: Yes (Other)
  Sender: PFIZER
  Company Number: US-PFIZER INC-PV202500114131

PATIENT
  Age: 65 Year
  Sex: Female
  Weight: 74.376 kg

DRUGS (1)
  1. PREMARIN [Suspect]
     Active Substance: ESTROGENS, CONJUGATED
     Indication: Vulvovaginal dryness
     Dosage: 1X/DAY
     Route: 061

REACTIONS (3)
  - Urinary retention [Recovering/Resolving]
  - Off label use [Unknown]
  - Off label use [Unknown]
